FAERS Safety Report 8687649 (Version 5)
Quarter: 2012Q4

REPORT INFORMATION
  Report Type: 
  Country: US (occurrence: US)
  Receive Date: 20120727
  Receipt Date: 20120924
  Transmission Date: 20130627
  Serious: Yes (Death, Hospitalization)
  Sender: FDA-Public Use
  Company Number: US-JNJFOC-20120711906

PATIENT
  Age: 85 Year
  Sex: Male

DRUGS (10)
  1. RISPERDAL [Suspect]
     Indication: DEMENTIA
     Route: 048
     Dates: start: 200912
  2. RISPERDAL [Suspect]
     Indication: PRODUCT USED FOR UNKNOWN INDICATION
     Dosage: every bed time
     Route: 048
     Dates: start: 20081210, end: 20120116
  3. UNSPECIFED MEDICATIONS [Concomitant]
     Indication: PRODUCT USED FOR UNKNOWN INDICATION
  4. DILTIAZEM XR [Concomitant]
     Indication: PRODUCT USED FOR UNKNOWN INDICATION
  5. DIGOXIN [Concomitant]
     Indication: ATRIAL FIBRILLATION
  6. FLOMAX [Concomitant]
     Indication: PRODUCT USED FOR UNKNOWN INDICATION
  7. ZOLOFT [Concomitant]
     Indication: PRODUCT USED FOR UNKNOWN INDICATION
     Dosage: every night
  8. K-DUR [Concomitant]
     Indication: PRODUCT USED FOR UNKNOWN INDICATION
  9. LORAZEPAM [Concomitant]
     Indication: PRODUCT USED FOR UNKNOWN INDICATION
  10. TEMAZEPAM [Concomitant]
     Indication: PRODUCT USED FOR UNKNOWN INDICATION
     Dosage: every night

REACTIONS (6)
  - Cardiac arrest [Fatal]
  - Hallucination [Unknown]
  - Abnormal behaviour [Not Recovered/Not Resolved]
  - Fall [Recovered/Resolved]
  - Injury [Recovered/Resolved]
  - Feeling abnormal [Unknown]
